FAERS Safety Report 4410634-6 (Version None)
Quarter: 2004Q3

REPORT INFORMATION
  Report Type: 
  Country: None (occurrence: None)
  Receive Date: 20040726
  Receipt Date: 20040713
  Transmission Date: 20050211
  Serious: Yes (Hospitalization)
  Sender: FDA-Public Use
  Company Number: 04P-007-0267381-00

PATIENT
  Age: 52 Year
  Sex: Male
  Weight: 72 kg

DRUGS (2)
  1. DEPAKOTE [Suspect]
     Indication: CONVULSION
     Dosage: 250 MG, 3 IN 1 D, PER ORAL
     Route: 048
     Dates: start: 20040501, end: 20040501
  2. DEPAKOTE [Suspect]
     Indication: MIGRAINE
     Dosage: 250 MG, 3 IN 1 D, PER ORAL
     Route: 048
     Dates: start: 20040501, end: 20040501

REACTIONS (4)
  - DELIRIUM [None]
  - GENERALISED OEDEMA [None]
  - HEPATITIS FULMINANT [None]
  - RASH [None]
